FAERS Safety Report 12173635 (Version 1)
Quarter: 2016Q1

REPORT INFORMATION
  Report Type: Spontaneous
  Country: US (occurrence: None)
  Receive Date: 20160311
  Receipt Date: 20160311
  Transmission Date: 20160526
  Serious: No
  Sender: FDA-Public Use
  Company Number: None

PATIENT
  Age: 22 Year
  Sex: Male

DRUGS (2)
  1. CYCLOSPORINE. [Suspect]
     Active Substance: CYCLOSPORINE
     Dosage: CYCLOSPORINE MODIFIED 25 MG ACTAVIS?THREE CAPSULE BID ORALLY
     Route: 048
     Dates: start: 20140527
  2. CYCLOSPORINE. [Suspect]
     Active Substance: CYCLOSPORINE
     Dosage: CYCLOSPORINE MODIFIED 25MG ACTAVIS?ONE CAPSULE BID ORALLY
     Route: 048
     Dates: start: 20140527

REACTIONS (1)
  - Peripheral swelling [None]

NARRATIVE: CASE EVENT DATE: 20160309
